FAERS Safety Report 18292796 (Version 1)
Quarter: 2020Q3

REPORT INFORMATION
  Report Type: Spontaneous
  Country: US (occurrence: US)
  Receive Date: 20200922
  Receipt Date: 20200922
  Transmission Date: 20201103
  Serious: No
  Sender: FDA-Public Use
  Company Number: US-AMGEN-USASP2020152082

PATIENT
  Age: 16 Year
  Sex: Female

DRUGS (1)
  1. ENBREL [Suspect]
     Active Substance: ETANERCEPT
     Indication: IDIOPATHIC CONDYLAR RESORPTION
     Dosage: UNK UNK, QWK
     Route: 065
     Dates: start: 202006

REACTIONS (2)
  - Off label use [Unknown]
  - Knee deformity [Unknown]

NARRATIVE: CASE EVENT DATE: 202006
